FAERS Safety Report 5025822-8 (Version None)
Quarter: 2006Q2

REPORT INFORMATION
  Report Type: 
  Country: None (occurrence: None)
  Receive Date: 20060608
  Receipt Date: 20060531
  Transmission Date: 20061013
  Serious: Yes (Hospitalization, Other)
  Sender: FDA-Public Use
  Company Number: HQWYE619801JUN06

PATIENT
  Age: 63 Year
  Sex: Male

DRUGS (5)
  1. CORDARONE [Suspect]
     Indication: ATRIAL FIBRILLATION
     Dosage: 600 MG WITHIN 24 HOURS INTRAVENOUS; SEE IMAGE
     Route: 042
     Dates: start: 20060413, end: 20060413
  2. CORDARONE [Suspect]
     Indication: ATRIAL FIBRILLATION
     Dosage: 600 MG WITHIN 24 HOURS INTRAVENOUS; SEE IMAGE
     Route: 042
     Dates: start: 20060413, end: 20060414
  3. LEGALON (SILYMARIN) [Concomitant]
  4. NOCTAMID (LORMETAZEPAM) [Concomitant]
  5. OMEPRAZOLE [Concomitant]

REACTIONS (2)
  - HYPOKALAEMIA [None]
  - TORSADE DE POINTES [None]
